FAERS Safety Report 14243581 (Version 3)
Quarter: 2018Q1

REPORT INFORMATION
  Report Type: Spontaneous
  Country: JP (occurrence: JP)
  Receive Date: 20171201
  Receipt Date: 20180117
  Transmission Date: 20180508
  Serious: Yes (Other)
  Sender: FDA-Public Use
  Company Number: JP-PFIZER INC-2017514631

PATIENT
  Age: 78 Year
  Sex: Male
  Weight: 57 kg

DRUGS (1)
  1. LYRICA [Suspect]
     Active Substance: PREGABALIN
     Indication: INTERVERTEBRAL DISC PROTRUSION
     Dosage: UNK
     Route: 048

REACTIONS (1)
  - Bradycardia [Recovered/Resolved]
